FAERS Safety Report 5288901-6 (Version None)
Quarter: 2007Q2

REPORT INFORMATION
  Report Type: 
  Country: None (occurrence: None)
  Receive Date: 20070405
  Receipt Date: 20070326
  Transmission Date: 20071010
  Serious: Yes (Hospitalization, Other)
  Sender: FDA-Public Use
  Company Number: US-PFIZER INC-2006054382

PATIENT
  Sex: Female
  Weight: 63.5 kg

DRUGS (3)
  1. CELEBREX [Suspect]
     Indication: OSTEOARTHRITIS
     Route: 048
  2. BEXTRA [Suspect]
     Indication: OSTEOARTHRITIS
  3. VIOXX [Suspect]

REACTIONS (9)
  - ANXIETY [None]
  - ARRHYTHMIA [None]
  - ARTERIOSCLEROSIS [None]
  - CEREBROVASCULAR ACCIDENT [None]
  - DEPRESSION [None]
  - HYPERTENSION [None]
  - LEG AMPUTATION [None]
  - PARAESTHESIA [None]
  - PERIPHERAL ARTERIAL OCCLUSIVE DISEASE [None]
